FAERS Safety Report 5242121-X (Version None)
Quarter: 2007Q1

REPORT INFORMATION
  Report Type: 
  Country: None (occurrence: None)
  Receive Date: 20070212
  Receipt Date: 20070129
  Transmission Date: 20070707
  Serious: Yes (Hospitalization)
  Sender: FDA-Public Use
  Company Number: 2006BI017703

PATIENT
  Age: 72 Year
  Sex: Female
  Weight: 52.6173 kg

DRUGS (14)
  1. AVONEX [Suspect]
     Indication: MULTIPLE SCLEROSIS
     Dosage: 30 UG; QW; IM
     Route: 030
     Dates: start: 20050801, end: 20061121
  2. SOLU-MEDROL [Concomitant]
  3. LYRICA [Concomitant]
  4. PREMARIN [Concomitant]
  5. DITROPAN [Concomitant]
  6. ASPIRIN [Concomitant]
  7. VITAMIN CAP [Concomitant]
  8. LORTAB [Concomitant]
  9. VALIUM [Concomitant]
  10. TIZANIDINE HCL [Concomitant]
  11. ASCORBIC ACID [Concomitant]
  12. CALCIUM [Concomitant]
  13. DARVOCET-N 100 [Concomitant]
  14. ULTRAM [Concomitant]

REACTIONS (2)
  - INFLUENZA LIKE ILLNESS [None]
  - PNEUMONIA MYCOPLASMAL [None]
